FAERS Safety Report 8509774-1 (Version None)
Quarter: 2012Q3

REPORT INFORMATION
  Report Type: 
  Country: None (occurrence: None)
  Receive Date: 20120713
  Receipt Date: 20120706
  Transmission Date: 20120928
  Serious: Yes (Disabling)
  Sender: FDA-Public Use
  Company Number: US-CELGENEUS-163-21880-11091811

PATIENT
  Sex: Male
  Weight: 98.972 kg

DRUGS (16)
  1. REVLIMID [Suspect]
     Dosage: 5 MILLIGRAM
     Route: 048
     Dates: start: 20110901, end: 20120101
  2. PLATELETS [Concomitant]
     Indication: THROMBOCYTOPENIA
     Route: 041
  3. CYTOXAN [Concomitant]
     Route: 065
  4. FOLIC ACID [Concomitant]
     Route: 065
  5. MAGNESIUM SULFATE [Concomitant]
     Route: 065
  6. REVLIMID [Suspect]
     Indication: MULTIPLE MYELOMA
     Dosage: 10 MILLIGRAM
     Route: 048
     Dates: start: 20101101
  7. CLONIDINE [Concomitant]
     Route: 065
  8. DECADRON [Concomitant]
     Route: 065
  9. LISINOPRIL [Concomitant]
     Route: 065
  10. VITAMIN B-12 [Concomitant]
     Route: 065
  11. VITAMIN D [Concomitant]
     Route: 065
  12. IMMUNE GLOBULIN INTRAVENOUS (HUMAN) [Concomitant]
     Route: 065
     Dates: end: 20120416
  13. VERAPAMIL [Concomitant]
     Route: 065
  14. VELCADE [Concomitant]
     Route: 065
  15. PREDNISONE [Concomitant]
     Indication: THROMBOCYTOPENIA
     Dosage: 30 MILLIGRAM
     Route: 048
     Dates: start: 20120201
  16. CORTICOSTEROIDS [Concomitant]
     Route: 065

REACTIONS (1)
  - IDIOPATHIC THROMBOCYTOPENIC PURPURA [None]
